FAERS Safety Report 5918931-X (Version None)
Quarter: 2008Q4

REPORT INFORMATION
  Report Type: 
  Country: None (occurrence: None)
  Receive Date: 20081015
  Receipt Date: 20081006
  Transmission Date: 20090506
  Serious: Yes (Other)
  Sender: FDA-Public Use
  Company Number: US-ROCHE-581409

PATIENT
  Sex: Male
  Weight: 79.4 kg

DRUGS (6)
  1. CAPECITABINE [Suspect]
     Indication: OESOPHAGEAL CANCER METASTATIC
     Dosage: TWO WEEKS ON AND ONE WEEK OFF OF 21 DAYS CYCLE
     Route: 048
     Dates: start: 20080422, end: 20080612
  2. CAPECITABINE [Suspect]
     Dosage: TWO WEEKS ON AND ONE WEEK OFF OF 21 DAYS CYCLE AND PATIENT RECEIVED 4 CYCLES TOTAL
     Route: 048
     Dates: start: 20080612, end: 20080701
  3. LAMICTAL [Concomitant]
     Route: 048
  4. PROTONIX [Concomitant]
     Route: 048
  5. CLONAZEPAM [Concomitant]
     Route: 048
  6. LEXAPRO [Concomitant]
     Route: 048

REACTIONS (1)
  - DISEASE PROGRESSION [None]
